FAERS Safety Report 25374449 (Version 1)
Quarter: 2025Q2

REPORT INFORMATION
  Report Type: Spontaneous
  Country: PL (occurrence: PL)
  Receive Date: 20250529
  Receipt Date: 20250529
  Transmission Date: 20250716
  Serious: Yes (Other)
  Sender: MYLAN
  Company Number: PL-RECORDATI-2025003236

PATIENT
  Age: 77 Year
  Sex: Female

DRUGS (32)
  1. METOPROLOL [Interacting]
     Active Substance: METOPROLOL
     Indication: Ischaemic stroke
  2. METOPROLOL [Interacting]
     Active Substance: METOPROLOL
     Indication: Cardiac failure
     Route: 065
  3. METOPROLOL [Interacting]
     Active Substance: METOPROLOL
     Indication: Sleep disorder
     Route: 065
  4. METOPROLOL [Interacting]
     Active Substance: METOPROLOL
  5. PANTOPRAZOLE [Interacting]
     Active Substance: PANTOPRAZOLE
     Indication: Ischaemic stroke
  6. PANTOPRAZOLE [Interacting]
     Active Substance: PANTOPRAZOLE
     Indication: Cardiac failure
     Route: 065
  7. PANTOPRAZOLE [Interacting]
     Active Substance: PANTOPRAZOLE
     Indication: Sleep disorder
     Route: 065
  8. PANTOPRAZOLE [Interacting]
     Active Substance: PANTOPRAZOLE
  9. DAPAGLIFLOZIN [Interacting]
     Active Substance: DAPAGLIFLOZIN
     Indication: Ischaemic stroke
  10. DAPAGLIFLOZIN [Interacting]
     Active Substance: DAPAGLIFLOZIN
     Indication: Cardiac failure
     Route: 065
  11. DAPAGLIFLOZIN [Interacting]
     Active Substance: DAPAGLIFLOZIN
     Indication: Sleep disorder
     Route: 065
  12. DAPAGLIFLOZIN [Interacting]
     Active Substance: DAPAGLIFLOZIN
  13. ROSUVASTATIN [Interacting]
     Active Substance: ROSUVASTATIN
     Indication: Ischaemic stroke
  14. ROSUVASTATIN [Interacting]
     Active Substance: ROSUVASTATIN
     Indication: Cardiac failure
     Route: 065
  15. ROSUVASTATIN [Interacting]
     Active Substance: ROSUVASTATIN
     Indication: Sleep disorder
     Route: 065
  16. ROSUVASTATIN [Interacting]
     Active Substance: ROSUVASTATIN
  17. RAMIPRIL [Interacting]
     Active Substance: RAMIPRIL
     Indication: Ischaemic stroke
  18. RAMIPRIL [Interacting]
     Active Substance: RAMIPRIL
     Indication: Cardiac failure
     Route: 065
  19. RAMIPRIL [Interacting]
     Active Substance: RAMIPRIL
     Indication: Sleep disorder
     Route: 065
  20. RAMIPRIL [Interacting]
     Active Substance: RAMIPRIL
  21. ASPIRIN [Interacting]
     Active Substance: ASPIRIN
     Indication: Ischaemic stroke
  22. ASPIRIN [Interacting]
     Active Substance: ASPIRIN
     Indication: Cardiac failure
     Route: 065
  23. ASPIRIN [Interacting]
     Active Substance: ASPIRIN
     Indication: Sleep disorder
     Route: 065
  24. ASPIRIN [Interacting]
     Active Substance: ASPIRIN
  25. TORSEMIDE [Interacting]
     Active Substance: TORSEMIDE
     Indication: Ischaemic stroke
  26. TORSEMIDE [Interacting]
     Active Substance: TORSEMIDE
     Indication: Cardiac failure
     Route: 065
  27. TORSEMIDE [Interacting]
     Active Substance: TORSEMIDE
     Indication: Sleep disorder
     Route: 065
  28. TORSEMIDE [Interacting]
     Active Substance: TORSEMIDE
  29. ESTAZOLAM [Concomitant]
     Active Substance: ESTAZOLAM
     Indication: Insomnia
     Dosage: 4 MILLIGRAM, QD (FOR THE NIGHT)
  30. ESTAZOLAM [Concomitant]
     Active Substance: ESTAZOLAM
     Dosage: 4 MILLIGRAM, QD (FOR THE NIGHT)
     Route: 065
  31. ESTAZOLAM [Concomitant]
     Active Substance: ESTAZOLAM
     Dosage: 4 MILLIGRAM, QD (FOR THE NIGHT)
     Route: 065
  32. ESTAZOLAM [Concomitant]
     Active Substance: ESTAZOLAM
     Dosage: 4 MILLIGRAM, QD (FOR THE NIGHT)

REACTIONS (2)
  - Disease risk factor [Unknown]
  - Drug-disease interaction [Unknown]
